FAERS Safety Report 26135741 (Version 1)
Quarter: 2025Q4

REPORT INFORMATION
  Report Type: Spontaneous
  Country: CN (occurrence: CN)
  Receive Date: 20251209
  Receipt Date: 20251209
  Transmission Date: 20260118
  Serious: Yes (Hospitalization)
  Sender: PFIZER
  Company Number: CN-PFIZER INC-PV202500143077

PATIENT
  Age: 20 Year
  Sex: Female

DRUGS (1)
  1. METHOTREXATE SODIUM [Suspect]
     Active Substance: METHOTREXATE SODIUM
     Indication: Ectopic pregnancy
     Dosage: 90 MG, 2X/DAY
     Route: 030
     Dates: start: 20251106, end: 20251110

REACTIONS (5)
  - Inflammation [Recovered/Resolved]
  - Mouth ulceration [Recovered/Resolved]
  - Oral infection [Recovered/Resolved]
  - Purulent discharge [Recovered/Resolved]
  - Off label use [Unknown]

NARRATIVE: CASE EVENT DATE: 20251106
